FAERS Safety Report 14637838 (Version 4)
Quarter: 2018Q2

REPORT INFORMATION
  Report Type: Report from Study
  Country: None (occurrence: ES)
  Receive Date: 20180314
  Receipt Date: 20180625
  Transmission Date: 20180711
  Serious: Yes (Death, Life-Threatening, Hospitalization, Other)
  Sender: FDA-Public Use
  Company Number: ES-ABBVIE-18P-144-2287602-00

PATIENT
  Age: 72 Year
  Sex: Male

DRUGS (9)
  1. DUODOPA [Suspect]
     Active Substance: CARBIDOPA\LEVODOPA
     Indication: PARKINSON^S DISEASE
     Dosage: MD 6ML, CD 2.3ML/HR, ED 2 ML PER DOSE, EXTRA DOSES PER DAY 16, 16 HR TREATMENT
     Route: 050
     Dates: start: 20170503, end: 20170525
  2. OMEPRAZOL [Concomitant]
     Active Substance: OMEPRAZOLE
     Indication: PROPHYLAXIS
     Route: 048
     Dates: start: 20130101
  3. RANOLACINA [Concomitant]
     Indication: HYPOTENSION
     Route: 048
     Dates: start: 20180212
  4. SINEMET RETARD [Concomitant]
     Dosage: 50/200 MG
     Route: 048
     Dates: start: 20170506
  5. ADIRO [Concomitant]
     Active Substance: ASPIRIN
     Indication: THROMBOSIS PROPHYLAXIS
     Route: 048
     Dates: start: 19980301
  6. PERMIXON [Concomitant]
     Active Substance: HERBALS\SAW PALMETTO
     Indication: BENIGN PROSTATIC HYPERPLASIA
     Route: 048
     Dates: start: 20170324
  7. DUODOPA [Suspect]
     Active Substance: CARBIDOPA\LEVODOPA
     Dosage: MD 8ML, CD 2.8ML/H, ED 2ML, EXTRA DOSES 3 PER DAY, 16 HR TREATMENT
     Route: 050
     Dates: start: 20170525
  8. SINEMET RETARD [Concomitant]
     Indication: PARKINSON^S DISEASE
     Dosage: 50/200 MG
     Route: 048
     Dates: start: 19970101, end: 20170505
  9. ATORVASTATINA [Concomitant]
     Active Substance: ATORVASTATIN
     Indication: BLOOD CHOLESTEROL INCREASED
     Route: 048
     Dates: start: 20090101

REACTIONS (1)
  - Cardiac failure [Fatal]

NARRATIVE: CASE EVENT DATE: 20180219
